FAERS Safety Report 4366379-4 (Version None)
Quarter: 2004Q2

REPORT INFORMATION
  Report Type: 
  Country: None (occurrence: None)
  Receive Date: 20040527
  Receipt Date: 20040329
  Transmission Date: 20050107
  Serious: No
  Sender: FDA-Public Use
  Company Number: US-GLAXOSMITHKLINE-A0505036A

PATIENT
  Sex: Female

DRUGS (3)
  1. VENTOLIN [Suspect]
     Indication: ASTHMA
     Dosage: 12PUFF PER DAY
     Route: 055
  2. ASMACORT [Concomitant]
     Indication: ASTHMA
     Dosage: 8PUFF PER DAY
     Route: 065
  3. INHALATION [Concomitant]
     Indication: INHALATION THERAPY
     Route: 065

REACTIONS (1)
  - DRUG INEFFECTIVE [None]
